FAERS Safety Report 5564868-8 (Version None)
Quarter: 2007Q4

REPORT INFORMATION
  Report Type: 
  Country: None (occurrence: None)
  Receive Date: 20071214
  Receipt Date: 20071214
  Transmission Date: 20080405
  Serious: Yes (Death)
  Sender: FDA-Public Use
  Company Number: None

PATIENT
  Sex: Male
  Weight: 48.5 kg

DRUGS (6)
  1. PROPRANOLOL [Suspect]
     Indication: CACHEXIA
     Dosage: 120MG 60MG MRN. 20MG 40MG NOON/EVE ORAL
     Route: 048
     Dates: start: 20070810, end: 20071028
  2. ETODOLAC [Suspect]
     Indication: CACHEXIA
     Dosage: 800MG 400MG MORN. 400MG EVE ORAL
     Route: 048
     Dates: start: 20070810, end: 20071028
  3. NEUROBION [Concomitant]
  4. FAMOTIDINE [Concomitant]
  5. LIQUID CODEINE SULPHATE [Concomitant]
  6. FERROUS SULFATE TAB [Concomitant]

REACTIONS (1)
  - TREATMENT NONCOMPLIANCE [None]
